FAERS Safety Report 6283806-6 (Version None)
Quarter: 2009Q3

REPORT INFORMATION
  Report Type: 
  Country: None (occurrence: None)
  Receive Date: 20090724
  Receipt Date: 20090714
  Transmission Date: 20100115
  Serious: Yes (Hospitalization)
  Sender: FDA-Public Use
  Company Number: BR-PFIZER INC-2009240726

PATIENT
  Age: 22 Month

DRUGS (3)
  1. EPELIN [Suspect]
     Indication: CONVULSION
     Dosage: 1.5 ML, 2X/DAY
     Route: 048
     Dates: start: 20081001
  2. EPELIN [Suspect]
     Dosage: 2.5 ML, 2X/DAY
     Dates: start: 20081101
  3. DEPAKENE [Concomitant]
     Dosage: 4 ML, 3X/DAY
     Dates: start: 20081101

REACTIONS (1)
  - CONVULSION [None]
